FAERS Safety Report 14586392 (Version 1)
Quarter: 2018Q1

REPORT INFORMATION
  Report Type: Report from Study
  Country: ES (occurrence: ES)
  Receive Date: 20180301
  Receipt Date: 20180301
  Transmission Date: 20180509
  Serious: Yes (Hospitalization)
  Sender: FDA-Public Use
  Company Number: ES-BAUSCH-BL-2018-005398

PATIENT
  Age: 1 Year
  Sex: Female

DRUGS (1)
  1. VENLAFAXINA [Suspect]
     Active Substance: VENLAFAXINE HYDROCHLORIDE
     Indication: PRODUCT USED FOR UNKNOWN INDICATION
     Route: 065
     Dates: start: 20161029

REACTIONS (4)
  - Psychomotor hyperactivity [Recovered/Resolved]
  - Vomiting [Recovered/Resolved]
  - Mydriasis [Recovering/Resolving]
  - Accidental exposure to product by child [Unknown]

NARRATIVE: CASE EVENT DATE: 20161029
